FAERS Safety Report 18249321 (Version 1)
Quarter: 2020Q3

REPORT INFORMATION
  Report Type: Spontaneous
  Country: US (occurrence: US)
  Receive Date: 20200909
  Receipt Date: 20200909
  Transmission Date: 20201103
  Serious: No
  Sender: FDA-Public Use
  Company Number: US-ASTRAZENECA-2020SF13517

PATIENT
  Age: 77 Year
  Sex: Female
  Weight: 65.8 kg

DRUGS (10)
  1. CRESTOR [Suspect]
     Active Substance: ROSUVASTATIN CALCIUM
     Indication: BLOOD CHOLESTEROL INCREASED
     Route: 048
  2. ASPIRIN. [Concomitant]
     Active Substance: ASPIRIN
     Indication: CARDIAC DISORDER
     Route: 048
  3. VITAMIN D3 [Concomitant]
     Active Substance: CHOLECALCIFEROL
     Indication: VITAMIN D DECREASED
     Route: 048
     Dates: start: 2020
  4. CALCIUM WITH VITAMIN D COMPLEX [Concomitant]
     Dosage: 1000MG?500MG WITH VITAMIN D COMPLEX 400IU TWICE A WEEK
     Route: 048
  5. POTASSIUM CHLORIDE ER [Concomitant]
     Active Substance: POTASSIUM CHLORIDE
     Indication: BLOOD POTASSIUM DECREASED
     Route: 048
  6. HCTZ [Concomitant]
     Active Substance: HYDROCHLOROTHIAZIDE
     Indication: DIURETIC THERAPY
     Route: 048
  7. LIVALO [Concomitant]
     Active Substance: PITAVASTATIN CALCIUM
     Indication: BLOOD CHOLESTEROL
     Route: 048
  8. COENZYME Q10 [Concomitant]
     Active Substance: DIETARY SUPPLEMENT\UBIDECARENONE
     Indication: CARDIAC DISORDER
     Route: 048
  9. CLOBETASOL PROPIONATE FOAM [Concomitant]
     Active Substance: CLOBETASOL PROPIONATE
     Indication: LICHEN PLANOPILARIS
     Route: 061
  10. VITAMIN B12 [Concomitant]
     Active Substance: CYANOCOBALAMIN
     Indication: VITAMIN B12 DECREASED
     Route: 048
     Dates: start: 2020

REACTIONS (10)
  - Vitamin D decreased [Unknown]
  - Psoriasis [Not Recovered/Not Resolved]
  - Muscle tightness [Recovered/Resolved]
  - Blood potassium decreased [Unknown]
  - Vitamin B12 decreased [Unknown]
  - Pruritus [Recovering/Resolving]
  - Blood cholesterol increased [Recovered/Resolved]
  - Lichen planopilaris [Not Recovered/Not Resolved]
  - Erythema [Recovering/Resolving]
  - Nerve compression [Recovered/Resolved]

NARRATIVE: CASE EVENT DATE: 2020
